FAERS Safety Report 8383032-0 (Version None)
Quarter: 2012Q2

REPORT INFORMATION
  Report Type: 
  Country: None (occurrence: None)
  Receive Date: 20120524
  Receipt Date: 20120508
  Transmission Date: 20120825
  Serious: Yes (Other)
  Sender: FDA-Public Use
  Company Number: CR-JNJFOC-20120509321

PATIENT

DRUGS (1)
  1. INFLIXIMAB, RECOMBINANT [Suspect]
     Indication: CYSTOID MACULAR OEDEMA
     Route: 031

REACTIONS (2)
  - OFF LABEL USE [None]
  - IRIDOCYCLITIS [None]
